FAERS Safety Report 20480704 (Version 7)
Quarter: 2024Q3

REPORT INFORMATION
  Report Type: Report from Study
  Country: TW (occurrence: TW)
  Receive Date: 20220216
  Receipt Date: 20240927
  Transmission Date: 20241017
  Serious: Yes (Other)
  Sender: NOVARTIS
  Company Number: TW-NOVARTISPH-NVSC2022TW035353

PATIENT
  Age: 66 Year
  Sex: Female

DRUGS (20)
  1. MYFORTIC [Suspect]
     Active Substance: MYCOPHENOLATE SODIUM
     Indication: Lupus nephritis
     Dosage: 540 MG, UNKNOWN
     Route: 048
     Dates: start: 20210429
  2. ACYCLOVIR [Concomitant]
     Active Substance: ACYCLOVIR
     Indication: Oral herpes
     Dosage: UNK
     Route: 061
     Dates: start: 20210217, end: 20210304
  3. ACYCLOVIR [Concomitant]
     Active Substance: ACYCLOVIR
     Indication: Herpes zoster
     Dosage: UNK
     Route: 061
     Dates: start: 20210527, end: 20210602
  4. FUROSEMIDE [Concomitant]
     Active Substance: FUROSEMIDE
     Indication: Lupus nephritis
     Dosage: UNK
     Route: 048
     Dates: start: 20210429, end: 20210526
  5. FUROSEMIDE [Concomitant]
     Active Substance: FUROSEMIDE
     Dosage: UNK
     Route: 048
     Dates: start: 20210610, end: 20210818
  6. LOSARTAN POTASSIUM [Concomitant]
     Active Substance: LOSARTAN POTASSIUM
     Indication: Hypertension
     Dosage: UNK
     Route: 048
     Dates: start: 20210429, end: 20210915
  7. SILVER SULFADIAZINE [Concomitant]
     Active Substance: SILVER SULFADIAZINE
     Indication: Herpes zoster
     Dosage: UNK
     Route: 061
     Dates: start: 20210603, end: 20210913
  8. TRAZODONE [Concomitant]
     Active Substance: TRAZODONE HYDROCHLORIDE
     Indication: Sleep disorder
     Dosage: UNK
     Route: 048
     Dates: start: 20210603, end: 20210610
  9. ULTRACET [Concomitant]
     Active Substance: ACETAMINOPHEN\TRAMADOL HYDROCHLORIDE
     Indication: Herpes zoster
     Dosage: UNK, (TRAMADOL 37.5 MG+ACETAMINOPHEN 325 MG)
     Route: 048
     Dates: start: 20210603, end: 20211206
  10. GABAPENTIN [Concomitant]
     Active Substance: GABAPENTIN
     Indication: Herpes zoster
     Dosage: UNK
     Route: 048
     Dates: start: 20210603, end: 20210705
  11. AMITRIPTYLINE HYDROCHLORIDE [Concomitant]
     Active Substance: AMITRIPTYLINE HYDROCHLORIDE
     Indication: Herpes zoster
     Dosage: UNK
     Route: 048
     Dates: start: 20210607, end: 20210609
  12. PREGABALIN [Concomitant]
     Active Substance: PREGABALIN
     Indication: Herpes zoster
     Dosage: UNK
     Route: 048
     Dates: start: 20210607, end: 20210609
  13. PREGABALIN [Concomitant]
     Active Substance: PREGABALIN
     Dosage: UNK
     Route: 048
     Dates: start: 20210706
  14. KETOPROFEN [Concomitant]
     Active Substance: KETOPROFEN
     Indication: Mental status changes
     Dosage: UNK
     Route: 030
     Dates: start: 20210610, end: 20210610
  15. NEOMYCIN [Concomitant]
     Active Substance: NEOMYCIN
     Indication: Blister
     Dosage: UNK
     Route: 061
     Dates: start: 20210914, end: 20211108
  16. TYROTHRICIN [Concomitant]
     Active Substance: TYROTHRICIN
     Indication: Blister
     Dosage: UNK
     Route: 061
     Dates: start: 20210914, end: 20211108
  17. DEXCHLORPHENIRAMINE MALEATE [Concomitant]
     Active Substance: DEXCHLORPHENIRAMINE MALEATE
     Indication: Pruritus
     Dosage: UNK
     Route: 048
     Dates: start: 20210914, end: 20211108
  18. HYDROCHLOROTHIAZIDE\VALSARTAN [Concomitant]
     Active Substance: HYDROCHLOROTHIAZIDE\VALSARTAN
     Indication: Hypertension
     Dosage: UNK, (VALSARTAN 160MG+HCTZ 12.5 MG)
     Route: 048
     Dates: start: 20210916
  19. BETAMETHASONE\GENTAMICIN [Concomitant]
     Active Substance: BETAMETHASONE\GENTAMICIN
     Indication: Herpes zoster
     Dosage: UNK
     Route: 061
     Dates: start: 20211207
  20. CALCIUM SENNOSIDES [Concomitant]
     Active Substance: SENNOSIDES
     Indication: Constipation
     Dosage: UNK
     Route: 048
     Dates: start: 20220125

REACTIONS (5)
  - Hypokalaemia [Recovered/Resolved]
  - Cutibacterium acnes infection [Recovered/Resolved]
  - Asthenia [Recovered/Resolved]
  - Hyponatraemia [Recovered/Resolved]
  - Hypoglycaemia [Recovered/Resolved]

NARRATIVE: CASE EVENT DATE: 20220122
